FAERS Safety Report 4635644-5 (Version None)
Quarter: 2005Q2

REPORT INFORMATION
  Report Type: 
  Country: None (occurrence: None)
  Receive Date: 20050413
  Receipt Date: 20050329
  Transmission Date: 20051028
  Serious: No
  Sender: FDA-Public Use
  Company Number: 04H-087-0282036-00

PATIENT
  Age: 7 Year
  Sex: 0

DRUGS (1)
  1. PRECEDEX [Suspect]
     Dosage: INTRAVENOUS
     Route: 042

REACTIONS (3)
  - BRADYCARDIA [None]
  - SICK SINUS SYNDROME [None]
  - SINUS ARRHYTHMIA [None]
